FAERS Safety Report 5397313-6 (Version None)
Quarter: 2007Q3

REPORT INFORMATION
  Report Type: 
  Country: None (occurrence: None)
  Receive Date: 20070723
  Receipt Date: 20070705
  Transmission Date: 20080115
  Serious: Yes (Other)
  Sender: FDA-Public Use
  Company Number: 8025416

PATIENT
  Age: 68 Year
  Sex: Male
  Weight: 75 kg

DRUGS (2)
  1. XOZAL [Suspect]
     Indication: PRURITUS
     Dosage: 1 DF 1/D PO
     Route: 048
     Dates: start: 20070525
  2. MAREVAN [Concomitant]

REACTIONS (3)
  - INTERNATIONAL NORMALISED RATIO INCREASED [None]
  - PHOTOSENSITIVITY REACTION [None]
  - PROTHROMBIN TIME PROLONGED [None]
